FAERS Safety Report 20679240 (Version 5)
Quarter: 2022Q3

REPORT INFORMATION
  Report Type: Spontaneous
  Country: US (occurrence: US)
  Receive Date: 20220406
  Receipt Date: 20220718
  Transmission Date: 20221026
  Serious: Yes (Hospitalization, Other)
  Sender: FDA-Public Use
  Company Number: US-PFIZER INC-202200488442

PATIENT
  Age: 35 Year
  Sex: Male

DRUGS (2)
  1. PROPOFOL [Suspect]
     Active Substance: PROPOFOL
     Indication: Cholecystectomy
     Dosage: 12880 MG
  2. PROPOFOL [Suspect]
     Active Substance: PROPOFOL
     Indication: Induction of anaesthesia

REACTIONS (2)
  - Brugada syndrome [Recovered/Resolved]
  - Unmasking of previously unidentified disease [Recovered/Resolved]
